FAERS Safety Report 8030001-6 (Version None)
Quarter: 2012Q1

REPORT INFORMATION
  Report Type: 
  Country: None (occurrence: None)
  Receive Date: 20120109
  Receipt Date: 20120102
  Transmission Date: 20120608
  Serious: Yes (Hospitalization)
  Sender: FDA-Public Use
  Company Number: FR-BRISTOL-MYERS SQUIBB COMPANY-16329054

PATIENT
  Age: 82 Year
  Sex: Female

DRUGS (6)
  1. LASIX [Concomitant]
  2. NEORECORMON [Concomitant]
  3. BISOPROLOL FUMARATE [Concomitant]
  4. COUMADIN [Suspect]
     Route: 048
     Dates: end: 20100112
  5. AMLODIPINE BESYLATE [Concomitant]
  6. LANTUS [Concomitant]

REACTIONS (4)
  - URINARY TRACT INFECTION [None]
  - MELAENA [None]
  - HAEMATOMA [None]
  - ANAEMIA [None]
